FAERS Safety Report 15920793 (Version 2)
Quarter: 2019Q2

REPORT INFORMATION
  Report Type: Spontaneous
  Country: US (occurrence: US)
  Receive Date: 20190205
  Receipt Date: 20190507
  Transmission Date: 20190711
  Serious: Yes (Other)
  Sender: FDA-Public Use
  Company Number: US-BIOMARINAP-US-2019-121792

PATIENT
  Age: 1 Year
  Sex: Female

DRUGS (1)
  1. ALDURAZYME [Suspect]
     Active Substance: LARONIDASE
     Indication: MUCOPOLYSACCHARIDOSIS I
     Dosage: UNK
     Route: 041
     Dates: start: 20181212, end: 20190416

REACTIONS (4)
  - Brain injury [Unknown]
  - Respiratory distress [Unknown]
  - Cardiac arrest [Unknown]
  - Oxygen saturation increased [Recovering/Resolving]

NARRATIVE: CASE EVENT DATE: 20190128
